FAERS Safety Report 9019899 (Version 2)
Quarter: 2013Q2

REPORT INFORMATION
  Report Type: Spontaneous
  Country: IT (occurrence: IT)
  Receive Date: 20130118
  Receipt Date: 20130417
  Transmission Date: 20140414
  Serious: Yes (Hospitalization)
  Sender: FDA-Public Use
  Company Number: IT-ABBOTT-13P-083-1035571-00

PATIENT
  Age: 44 Year
  Sex: Female
  Weight: 75 kg

DRUGS (2)
  1. KLACID [Suspect]
     Indication: TOOTH ABSCESS
     Route: 048
     Dates: start: 20121126, end: 20121127
  2. PARIET [Concomitant]
     Indication: PRODUCT USED FOR UNKNOWN INDICATION

REACTIONS (7)
  - Activities of daily living impaired [Unknown]
  - Abdominal pain upper [Recovering/Resolving]
  - Nausea [Recovering/Resolving]
  - Tongue discolouration [Recovering/Resolving]
  - Vertigo [Recovering/Resolving]
  - Abdominal discomfort [Unknown]
  - Dizziness [Unknown]
